FAERS Safety Report 20946714 (Version 1)
Quarter: 2022Q2

REPORT INFORMATION
  Report Type: Spontaneous
  Country: US (occurrence: None)
  Receive Date: 20220610
  Receipt Date: 20220610
  Transmission Date: 20220720
  Serious: No
  Sender: FDA-Public Use
  Company Number: None

PATIENT
  Sex: Female
  Weight: 80.7 kg

DRUGS (25)
  1. CAPECITABINE [Suspect]
     Active Substance: CAPECITABINE
     Indication: Cholangiocarcinoma
     Dosage: OTHER FREQUENCY : BID14 OF 21;?
     Route: 048
  2. ALIGN JR FOR KIDS [Concomitant]
  3. AMIODARONE HYDROCHLORIDE [Concomitant]
     Active Substance: AMIODARONE HYDROCHLORIDE
  4. ATENOLOL [Concomitant]
     Active Substance: ATENOLOL
  5. COENZYME Q10 [Concomitant]
     Active Substance: DIETARY SUPPLEMENT\UBIDECARENONE
  6. DELSYM [Concomitant]
     Active Substance: DEXTROMETHORPHAN
  7. DETROL LA [Concomitant]
     Active Substance: TOLTERODINE TARTRATE
  8. DOXEPIN HCL [Concomitant]
     Active Substance: DOXEPIN HYDROCHLORIDE
  9. ELIQUIS [Concomitant]
     Active Substance: APIXABAN
  10. LASIX [Concomitant]
     Active Substance: FUROSEMIDE
  11. HYDROCORTISONE [Concomitant]
     Active Substance: HYDROCORTISONE
  12. LEVOTHYROXINE SODIUM [Concomitant]
     Active Substance: LEVOTHYROXINE SODIUM
  13. LEXAPRO [Concomitant]
     Active Substance: ESCITALOPRAM OXALATE
  14. LIPITOR [Concomitant]
     Active Substance: ATORVASTATIN CALCIUM
  15. LISINOPRIL [Concomitant]
     Active Substance: LISINOPRIL
  16. LORAZEPAM [Concomitant]
     Active Substance: LORAZEPAM
  17. METFORMIN HYDROCHLORIDE [Concomitant]
     Active Substance: METFORMIN HYDROCHLORIDE
  18. PEPCID AC ORAL TABLET 10MG [Concomitant]
  19. PROAIR HFA [Concomitant]
     Active Substance: ALBUTEROL SULFATE
  20. PROTONIX [Concomitant]
     Active Substance: PANTOPRAZOLE SODIUM
  21. METHOCARBAMOL [Concomitant]
     Active Substance: METHOCARBAMOL
  22. SPIRONOLACTONE [Concomitant]
     Active Substance: SPIRONOLACTONE
  23. VITAMIN D (CHOLECALIFEROL) [Concomitant]
  24. VOLTAREN [Concomitant]
     Active Substance: DICLOFENAC SODIUM
  25. ZOFRAN [Concomitant]
     Active Substance: ONDANSETRON HYDROCHLORIDE

REACTIONS (2)
  - Disease progression [None]
  - Therapy cessation [None]
